FAERS Safety Report 13615810 (Version 3)
Quarter: 2017Q3

REPORT INFORMATION
  Report Type: Spontaneous
  Country: US (occurrence: US)
  Receive Date: 20170606
  Receipt Date: 20170831
  Transmission Date: 20171127
  Serious: Yes (Death, Other)
  Sender: FDA-Public Use
  Company Number: US-PFIZER INC-2017243525

PATIENT
  Age: 59 Year
  Sex: Male

DRUGS (1)
  1. EMBEDA [Suspect]
     Active Substance: MORPHINE SULFATE\NALTREXONE HYDROCHLORIDE
     Dosage: UNK

REACTIONS (3)
  - Acute myocardial infarction [Fatal]
  - Cardiac arrest [Fatal]
  - Pruritus [Unknown]

NARRATIVE: CASE EVENT DATE: 201705
